FAERS Safety Report 22093063 (Version 1)
Quarter: 2023Q1

REPORT INFORMATION
  Report Type: Spontaneous
  Country: IN (occurrence: IN)
  Receive Date: 20230314
  Receipt Date: 20230314
  Transmission Date: 20230418
  Serious: No
  Sender: FDA-Public Use
  Company Number: IN-LUPIN PHARMACEUTICALS INC.-2023-01983

PATIENT

DRUGS (7)
  1. BUDESONIDE\FORMOTEROL FUMARATE [Suspect]
     Active Substance: BUDESONIDE\FORMOTEROL FUMARATE
     Indication: Product used for unknown indication
     Dosage: UNK
     Route: 065
     Dates: start: 20221001
  2. DESLORATADINE\MONTELUKAST SODIUM [Suspect]
     Active Substance: DESLORATADINE\MONTELUKAST SODIUM
     Indication: Product used for unknown indication
     Dosage: UNK
     Route: 065
     Dates: start: 20221001
  3. HETRAZAN [Suspect]
     Active Substance: DIETHYLCARBAMAZINE CITRATE
     Indication: Product used for unknown indication
     Dosage: 100 MG, TID
     Route: 065
  4. AMBROXOL ACEFYLLINATE [Suspect]
     Active Substance: AMBROXOL ACEFYLLINATE
     Indication: Product used for unknown indication
     Dosage: 100 MG, BID
     Route: 065
  5. METHYLPREDNISOLONE [Suspect]
     Active Substance: METHYLPREDNISOLONE
     Indication: Product used for unknown indication
     Dosage: 0.5 DOSAGE FORM, BID
     Route: 065
  6. METHYLPREDNISOLONE [Suspect]
     Active Substance: METHYLPREDNISOLONE
     Dosage: 0.5 DOSAGE FORM, QD
     Route: 065
  7. ESOMEPRAZOLE MAGNESIUM [Suspect]
     Active Substance: ESOMEPRAZOLE MAGNESIUM
     Indication: Product used for unknown indication
     Dosage: 1 DOSAGE FORM, QD
     Route: 065

REACTIONS (2)
  - Drug ineffective [Unknown]
  - Cough [Unknown]
